FAERS Safety Report 10266945 (Version 1)
Quarter: 2014Q2

REPORT INFORMATION
  Report Type: Spontaneous
  Country: US (occurrence: US)
  Receive Date: 20140630
  Receipt Date: 20140630
  Transmission Date: 20141212
  Serious: Yes (Hospitalization)
  Sender: FDA-Public Use
  Company Number: US-BIOGENIDEC-2014BI060294

PATIENT
  Sex: Female

DRUGS (1)
  1. TECFIDERA [Suspect]
     Indication: MULTIPLE SCLEROSIS
     Dates: start: 20140311

REACTIONS (5)
  - Multiple sclerosis relapse [Unknown]
  - Peripheral swelling [Unknown]
  - Hypertension [Unknown]
  - Depression [Unknown]
  - Abdominal discomfort [Unknown]
